FAERS Safety Report 23468415 (Version 1)
Quarter: 2024Q1

REPORT INFORMATION
  Report Type: Report from Study
  Country: DE (occurrence: DE)
  Receive Date: 20240202
  Receipt Date: 20240202
  Transmission Date: 20240410
  Serious: Yes (Hospitalization, Other)
  Sender: FDA-Public Use
  Company Number: DE-CELLTRION INC.-2024DE002030

PATIENT

DRUGS (3)
  1. YUFLYMA [Suspect]
     Active Substance: ADALIMUMAB-AATY
     Indication: Axial spondyloarthritis
     Dosage: 40 MG
     Dates: start: 20220705
  2. INFLECTRA [Suspect]
     Active Substance: INFLIXIMAB-DYYB
     Indication: Axial spondyloarthritis
     Dosage: 300 MILLIGRAM, UNK
     Dates: start: 20201124, end: 20220509
  3. ETORICOXIB [Suspect]
     Active Substance: ETORICOXIB
     Indication: Axial spondyloarthritis
     Dosage: 120 MILLIGRAM, UNK
     Dates: start: 20201026

REACTIONS (1)
  - Prostate cancer [Unknown]

NARRATIVE: CASE EVENT DATE: 20230105
